FAERS Safety Report 12377450 (Version 1)
Quarter: 2016Q2

REPORT INFORMATION
  Report Type: Spontaneous
  Country: US (occurrence: US)
  Receive Date: 20160517
  Receipt Date: 20160517
  Transmission Date: 20160815
  Serious: No
  Sender: FDA-Public Use
  Company Number: US-RELYPSA-RLY2016000176

PATIENT

DRUGS (5)
  1. HEART MEDICINE [Concomitant]
  2. COUMADINE [Concomitant]
     Active Substance: WARFARIN SODIUM
  3. VELTASSA [Suspect]
     Active Substance: PATIROMER
     Indication: HYPERKALAEMIA
     Dosage: 8.49 G, QD
     Route: 048
     Dates: start: 2016
  4. SOMETHING FOR STOMACH [Concomitant]
  5. BABY ASPIRIN [Concomitant]
     Active Substance: ASPIRIN

REACTIONS (2)
  - Muscle spasms [Unknown]
  - Laboratory test abnormal [Unknown]

NARRATIVE: CASE EVENT DATE: 20160310
